FAERS Safety Report 4545231-5 (Version None)
Quarter: 2005Q1

REPORT INFORMATION
  Report Type: 
  Country: None (occurrence: None)
  Receive Date: 20050103
  Receipt Date: 20050103
  Transmission Date: 20050727
  Serious: No
  Sender: FDA-Public Use
  Company Number: None

PATIENT
  Age: 76 Year
  Sex: Male
  Weight: 107.9561 kg

DRUGS (10)
  1. LEVAQUIN [Suspect]
     Indication: UPPER RESPIRATORY TRACT INFECTION
     Dosage: LEVAQUIN 500MG/D
  2. ASPIRIN [Concomitant]
  3. SYNTHROID [Concomitant]
  4. ADVAIR DISKUS 100/50 [Concomitant]
  5. PREVACID [Concomitant]
  6. FOSAMAX [Concomitant]
  7. TIAZAC [Concomitant]
  8. ZETIA [Concomitant]
  9. PREDNISONE [Concomitant]
  10. TRICOR [Concomitant]

REACTIONS (2)
  - SWELLING [None]
  - TENDON DISORDER [None]
